FAERS Safety Report 23864408 (Version 1)
Quarter: 2024Q2

REPORT INFORMATION
  Report Type: Spontaneous
  Country: CN (occurrence: CN)
  Receive Date: 20240516
  Receipt Date: 20240516
  Transmission Date: 20240717
  Serious: Yes (Other)
  Sender: FDA-Public Use
  Company Number: CN-ELI_LILLY_AND_COMPANY-CN202405003452

PATIENT
  Age: 62 Year
  Sex: Female
  Weight: 65 kg

DRUGS (6)
  1. DULAGLUTIDE [Suspect]
     Active Substance: DULAGLUTIDE
     Indication: Hyperglycaemia
     Dosage: 1.5 MG, WEEKLY (1/W)
     Route: 042
     Dates: start: 20240430
  2. DULAGLUTIDE [Suspect]
     Active Substance: DULAGLUTIDE
     Dosage: 1.5 MG, WEEKLY (1/W)
     Route: 058
     Dates: start: 20240318
  3. DULAGLUTIDE [Suspect]
     Active Substance: DULAGLUTIDE
     Dosage: 1.5 MG, WEEKLY (1/W)
     Route: 058
     Dates: start: 20240325
  4. METFORMIN [Concomitant]
     Active Substance: METFORMIN HYDROCHLORIDE
     Indication: Product used for unknown indication
     Dosage: UNK UNK, OTHER (2 TIMES A DAY)
     Route: 065
     Dates: start: 20240318
  5. METFORMIN [Concomitant]
     Active Substance: METFORMIN HYDROCHLORIDE
     Dosage: UNK, UNKNOWN ( 1 TABLET EACH TIME, 3 TIMES A DAY, ONCE A WEEK )
     Route: 065
     Dates: start: 20240325
  6. ACARBOSE [Concomitant]
     Active Substance: ACARBOSE
     Indication: Product used for unknown indication
     Dosage: UNK, UNKNOWN ( 1 TABLET EACH TIME, 3 TIMES A DAY, ONCE A WEEK )
     Route: 058

REACTIONS (2)
  - Diabetic ketoacidosis [Recovered/Resolved]
  - Incorrect route of product administration [Unknown]

NARRATIVE: CASE EVENT DATE: 20240430
